FAERS Safety Report 14609961 (Version 11)
Quarter: 2019Q4

REPORT INFORMATION
  Report Type: Report from Study
  Country: US (occurrence: US)
  Receive Date: 20180307
  Receipt Date: 20191230
  Transmission Date: 20200122
  Serious: Yes (Death, Life-Threatening, Hospitalization, Other)
  Sender: FDA-Public Use
  Company Number: US-ACTELION-A-US2018-168606

PATIENT
  Age: 63 Year
  Sex: Male
  Weight: 111.57 kg

DRUGS (3)
  1. AMLODIPINE [Concomitant]
     Active Substance: AMLODIPINE BESYLATE
  2. OPSUMIT [Suspect]
     Active Substance: MACITENTAN
     Indication: PULMONARY HYPERTENSION
     Dosage: 10 MG, QD
     Route: 048
     Dates: start: 20140516
  3. ADCIRCA [Concomitant]
     Active Substance: TADALAFIL

REACTIONS (9)
  - Neoplasm malignant [Unknown]
  - Cancer surgery [Unknown]
  - Malignant melanoma stage III [Recovered/Resolved]
  - Pulmonary arterial hypertension [Unknown]
  - Death [Fatal]
  - Lesion excision [Unknown]
  - Condition aggravated [Unknown]
  - Wound [Unknown]
  - Dyspnoea [Unknown]

NARRATIVE: CASE EVENT DATE: 20191206
